FAERS Safety Report 23907053 (Version 1)
Quarter: 2024Q2

REPORT INFORMATION
  Report Type: Spontaneous
  Country: US (occurrence: US)
  Receive Date: 20240528
  Receipt Date: 20240528
  Transmission Date: 20240716
  Serious: Yes (Hospitalization, Disabling, Other)
  Sender: FDA-Public Use
  Company Number: US-AMGEN-USASP2024102360

PATIENT
  Age: 62 Year
  Sex: Female

DRUGS (2)
  1. ENBREL [Suspect]
     Active Substance: BENZYL ALCOHOL\ETANERCEPT
     Indication: Psoriatic arthropathy
     Dosage: 50 MILLIGRAM, QWK
     Route: 065
     Dates: start: 2020, end: 2022
  2. ENBREL [Suspect]
     Active Substance: BENZYL ALCOHOL\ETANERCEPT
     Indication: Osteoporosis
     Dosage: 50 MILLIGRAM, QWK
     Route: 065
     Dates: start: 2022

REACTIONS (14)
  - Intracranial aneurysm [Unknown]
  - Disability [Unknown]
  - Myocardial infarction [Unknown]
  - Psoriatic arthropathy [Not Recovered/Not Resolved]
  - Osteoporosis [Not Recovered/Not Resolved]
  - Insomnia [Unknown]
  - Fall [Unknown]
  - Fear of injection [Unknown]
  - Tooth loss [Unknown]
  - Stress [Unknown]
  - Device difficult to use [Unknown]
  - Drug dose omission by device [Unknown]
  - Wrong technique in product usage process [Unknown]
  - Accidental exposure to product [Unknown]

NARRATIVE: CASE EVENT DATE: 20220101
